FAERS Safety Report 7626132-2 (Version None)
Quarter: 2011Q3

REPORT INFORMATION
  Report Type: 
  Country: None (occurrence: None)
  Receive Date: 20110721
  Receipt Date: 20110707
  Transmission Date: 20111222
  Serious: Yes (Death)
  Sender: FDA-Public Use
  Company Number: US-PFIZER INC-2010001586

PATIENT
  Age: 54 Year
  Sex: Female

DRUGS (5)
  1. ACETAMINOPHEN [Suspect]
     Indication: PRODUCT USED FOR UNKNOWN INDICATION
     Dosage: UNK
     Route: 048
     Dates: start: 20080101
  2. CITALOPRAM HYDROBROMIDE [Suspect]
     Dosage: UNK
     Route: 048
     Dates: start: 20080101
  3. AMLODIPINE BESYLATE [Suspect]
     Indication: PRODUCT USED FOR UNKNOWN INDICATION
     Dosage: UNK
     Route: 048
     Dates: start: 20080101
  4. OXYCODONE HCL [Suspect]
     Indication: PRODUCT USED FOR UNKNOWN INDICATION
     Dosage: UNK
     Route: 048
     Dates: start: 20080101
  5. ETHANOL [Suspect]
     Dosage: UNK
     Route: 048
     Dates: end: 20080101

REACTIONS (3)
  - COMPLETED SUICIDE [None]
  - RESPIRATORY ARREST [None]
  - CARDIAC ARREST [None]
